FAERS Safety Report 19776886 (Version 1)
Quarter: 2021Q3

REPORT INFORMATION
  Report Type: Spontaneous
  Country: US (occurrence: US)
  Receive Date: 20210902
  Receipt Date: 20210902
  Transmission Date: 20211014
  Serious: No
  Sender: FDA-Public Use
  Company Number: US-PRINSTON PHARMACEUTICAL INC.-2021PRN00233

PATIENT
  Age: 67 Year
  Sex: Female
  Weight: 101.15 kg

DRUGS (8)
  1. AMLODIPINE [Concomitant]
     Active Substance: AMLODIPINE BESYLATE
  2. GENERIC WELLBUTRIN [Concomitant]
     Active Substance: BUPROPION HYDROCHLORIDE
  3. LOSARTAN POTASSIUM. [Suspect]
     Active Substance: LOSARTAN POTASSIUM
  4. GLUCOSAMINE [Concomitant]
     Active Substance: GLUCOSAMINE
  5. FENOFIBRATE. [Suspect]
     Active Substance: FENOFIBRATE
     Indication: BLOOD CHOLESTEROL INCREASED
     Dosage: 145 MG, 1X/DAY
     Route: 048
     Dates: start: 20210615, end: 20210618
  6. VITAMIN C [Concomitant]
     Active Substance: ASCORBIC ACID
  7. HYDROCHLOROTHIAZIDE. [Suspect]
     Active Substance: HYDROCHLOROTHIAZIDE
  8. UNSPECIFIED MULTIVITAMIN [Concomitant]

REACTIONS (4)
  - Pruritus [Recovered/Resolved]
  - Urticaria [Recovered/Resolved]
  - Paraesthesia [Recovered/Resolved]
  - Drug hypersensitivity [Recovered/Resolved]

NARRATIVE: CASE EVENT DATE: 20210617
